FAERS Safety Report 17135030 (Version 1)
Quarter: 2019Q4

REPORT INFORMATION
  Report Type: Spontaneous
  Country: US (occurrence: US)
  Receive Date: 20191120
  Receipt Date: 20191120
  Transmission Date: 20200122
  Serious: Yes (Hospitalization)
  Sender: FDA-Public Use
  Company Number: None

PATIENT
  Sex: Male
  Weight: 99.8 kg

DRUGS (3)
  1. CASODEX [Suspect]
     Active Substance: BICALUTAMIDE
     Dates: end: 20191017
  2. BICALUTAMIDE. [Concomitant]
     Active Substance: BICALUTAMIDE
  3. LEUPROLIDE ACETATE. [Concomitant]
     Active Substance: LEUPROLIDE ACETATE
     Dates: end: 20190404

REACTIONS (2)
  - Product dose omission [None]
  - Blood glucose increased [None]

NARRATIVE: CASE EVENT DATE: 20191104
